FAERS Safety Report 10045444 (Version 1)
Quarter: 2014Q1

REPORT INFORMATION
  Report Type: Spontaneous
  Country: US (occurrence: US)
  Receive Date: 20140328
  Receipt Date: 20140328
  Transmission Date: 20141002
  Serious: Yes (Other)
  Sender: FDA-Public Use
  Company Number: US-ASTRAZENECA-2014SE20198

PATIENT
  Age: 46 Year
  Sex: Male

DRUGS (2)
  1. OMEPRAZOLE [Suspect]
     Dosage: GENERIC, 20 MG DAILY
     Route: 048
     Dates: start: 2011
  2. OMEPRAZOLE [Suspect]
     Dosage: GENERIC, 40 MG DAILY
     Route: 048

REACTIONS (1)
  - Hepatotoxicity [Unknown]
